FAERS Safety Report 8212245-3 (Version None)
Quarter: 2012Q1

REPORT INFORMATION
  Report Type: 
  Country: None (occurrence: None)
  Receive Date: 20120315
  Receipt Date: 20120315
  Transmission Date: 20120608
  Serious: Yes (Other)
  Sender: FDA-Public Use
  Company Number: US-JNJFOC-20120303348

PATIENT
  Sex: Female
  Weight: 77.11 kg

DRUGS (11)
  1. LISINOPRIL [Concomitant]
     Indication: BLOOD PRESSURE
     Route: 048
     Dates: start: 20020101
  2. NEURONTIN [Concomitant]
     Indication: PAIN
     Route: 048
     Dates: start: 20020101
  3. MOBIC [Concomitant]
     Indication: ANTIINFLAMMATORY THERAPY
     Route: 048
     Dates: start: 20020101
  4. REMICADE [Suspect]
     Indication: RHEUMATOID ARTHRITIS
     Dosage: 4 VIALS
     Route: 042
     Dates: start: 20050101
  5. PERCOCET [Concomitant]
     Indication: PAIN
     Dosage: DOSE: 5/325 MG
     Route: 048
     Dates: start: 20020101
  6. MULTI-VITAMINS [Concomitant]
     Indication: NUTRITIONAL SUPPORT
     Route: 048
     Dates: start: 20020101
  7. ASPIRIN [Concomitant]
     Indication: ANTICOAGULANT THERAPY
     Route: 048
     Dates: start: 20020101
  8. CALCIUM [Concomitant]
     Indication: NUTRITIONAL SUPPORT
     Route: 048
     Dates: start: 20020101
  9. DITROPAN [Concomitant]
     Indication: BLADDER DISORDER
     Route: 048
     Dates: start: 20020101
  10. LORAZEPAM [Concomitant]
     Indication: ANXIETY
     Route: 048
     Dates: start: 20020101
  11. MS CONTIN [Concomitant]
     Indication: PAIN
     Route: 048
     Dates: start: 20020101

REACTIONS (3)
  - NECK PAIN [None]
  - JOINT INJURY [None]
  - ROTATOR CUFF SYNDROME [None]
